FAERS Safety Report 5819591-9 (Version None)
Quarter: 2008Q3

REPORT INFORMATION
  Report Type: 
  Country: None (occurrence: None)
  Receive Date: 20080717
  Receipt Date: 20080707
  Transmission Date: 20090109
  Serious: Yes (Life-Threatening)
  Sender: FDA-Public Use
  Company Number: 002059

PATIENT
  Age: 49 Year
  Sex: Male

DRUGS (7)
  1. BUSULFEX [Suspect]
     Indication: STEM CELL TRANSPLANT
     Dosage: 24 ML; 32 ML, DAILY DOSE; INTRAVENOUS; 8 ML, DAILY DOSE; INTRAVENOUS
     Route: 042
     Dates: start: 20070615, end: 20070615
  2. BUSULFEX [Suspect]
     Indication: STEM CELL TRANSPLANT
     Dosage: 24 ML; 32 ML, DAILY DOSE; INTRAVENOUS; 8 ML, DAILY DOSE; INTRAVENOUS
     Route: 042
     Dates: start: 20070616, end: 20070618
  3. BUSULFEX [Suspect]
     Indication: STEM CELL TRANSPLANT
     Dosage: 24 ML; 32 ML, DAILY DOSE; INTRAVENOUS; 8 ML, DAILY DOSE; INTRAVENOUS
     Route: 042
     Dates: start: 20070619, end: 20070619
  4. FLUDARABINE PHOSPHATE [Concomitant]
  5. VALPROATE SODIUM [Concomitant]
  6. FILGRASTIM (FILGRASTIM) [Concomitant]
  7. CYCLOSPORINE [Concomitant]

REACTIONS (6)
  - ANOREXIA [None]
  - GRAFT VERSUS HOST DISEASE [None]
  - JAUNDICE [None]
  - MALAISE [None]
  - NAUSEA [None]
  - STOMATITIS [None]
